FAERS Safety Report 14548592 (Version 1)
Quarter: 2018Q1

REPORT INFORMATION
  Report Type: Spontaneous
  Country: US (occurrence: US)
  Receive Date: 20180219
  Receipt Date: 20180219
  Transmission Date: 20180509
  Serious: Yes (Hospitalization)
  Sender: FDA-Public Use
  Company Number: US-ACTELION-A-US2018-167745

PATIENT
  Age: 72 Year
  Sex: Female

DRUGS (6)
  1. OPSUMIT [Suspect]
     Active Substance: MACITENTAN
     Indication: PULMONARY ARTERIAL HYPERTENSION
     Dosage: 10 MG, UNK
     Route: 048
     Dates: start: 201511
  2. ORENITRAM [Concomitant]
     Active Substance: TREPROSTINIL
     Dosage: 0.125 MG, UNK
  3. ALIGN [Concomitant]
     Active Substance: BIFIDOBACTERIUM LONGUM SUBSP. INFANTIS
  4. CALCITRIOL. [Concomitant]
     Active Substance: CALCITRIOL
  5. FLONASE [Concomitant]
     Active Substance: FLUTICASONE PROPIONATE
  6. MECLIZINE [Concomitant]
     Active Substance: MECLIZINE HYDROCHLORIDE
     Dosage: 12.5 MG, UNK

REACTIONS (1)
  - Atrial flutter [Recovered/Resolved]
